FAERS Safety Report 16385916 (Version 2)
Quarter: 2019Q2

REPORT INFORMATION
  Report Type: Spontaneous
  Country: FR (occurrence: FR)
  Receive Date: 20190603
  Receipt Date: 20190605
  Transmission Date: 20190711
  Serious: Yes (Death, Hospitalization)
  Sender: FDA-Public Use
  Company Number: FR-009507513-1906FRA000485

PATIENT
  Age: 80 Year
  Sex: Female
  Weight: 70 kg

DRUGS (4)
  1. METHOTREXATE. [Suspect]
     Active Substance: METHOTREXATE
     Dosage: DOSE: 4000 MILLIGRAM
     Route: 041
     Dates: start: 20101110, end: 20101110
  2. TEMOZOLOMIDE. [Suspect]
     Active Substance: TEMOZOLOMIDE
     Dosage: 140 MILLIGRAM, QD
     Route: 048
     Dates: start: 20101110, end: 20101114
  3. DEPOCYTE [Suspect]
     Active Substance: CYTARABINE
     Dosage: 1 DOSAGE FORM
     Route: 037
     Dates: start: 20101113, end: 20101113
  4. ZOPHREN (ONDANSETRON HYDROCHLORIDE) [Suspect]
     Active Substance: ONDANSETRON HYDROCHLORIDE
     Dosage: 1 DOSAGE FORM, QD; STRENGTH: 8MG/4ML; FORMULATION: SUSPENSION FOR INJECTION IN PRE-FILLED SYRINGE
     Route: 041
     Dates: start: 20101110, end: 20101114

REACTIONS (8)
  - Oral mucosal exfoliation [Fatal]
  - Acute respiratory failure [Fatal]
  - Rash macular [Fatal]
  - Vulval oedema [Fatal]
  - Toxic epidermal necrolysis [Fatal]
  - Dyspnoea [Fatal]
  - Face oedema [Fatal]
  - Erythema [Fatal]

NARRATIVE: CASE EVENT DATE: 20101115
